FAERS Safety Report 7518769-6 (Version None)
Quarter: 2011Q2

REPORT INFORMATION
  Report Type: 
  Country: None (occurrence: None)
  Receive Date: 20110602
  Receipt Date: 20110523
  Transmission Date: 20111010
  Serious: Yes (Other)
  Sender: FDA-Public Use
  Company Number: PHHY2011JP26130

PATIENT
  Age: 59 Year
  Sex: Male

DRUGS (8)
  1. LAMISIL [Suspect]
     Dosage: 125 MG DAILY
     Route: 048
  2. MEXITIL [Concomitant]
     Dosage: UNK
  3. LAMISIL [Suspect]
     Dosage: 250 MG DAILY
     Route: 048
  4. PRAVASTATIN SODIUM [Concomitant]
     Dosage: UNK
  5. LAXOBERON [Concomitant]
     Dosage: UNK
  6. DEPAKENE [Concomitant]
     Dosage: UNK
  7. TEGRETOL [Concomitant]
     Dosage: UNK
  8. BUP-4 [Concomitant]
     Dosage: UNK

REACTIONS (1)
  - BLOOD ALKALINE PHOSPHATASE INCREASED [None]
